FAERS Safety Report 13569140 (Version 1)
Quarter: 2017Q2

REPORT INFORMATION
  Report Type: Spontaneous
  Country: US (occurrence: US)
  Receive Date: 20170522
  Receipt Date: 20170522
  Transmission Date: 20170830
  Serious: Yes (Other)
  Sender: FDA-Public Use
  Company Number: US-OTSUKA-2017_011101

PATIENT
  Sex: Female

DRUGS (1)
  1. REXULTI [Suspect]
     Active Substance: BREXPIPRAZOLE
     Indication: PRODUCT USED FOR UNKNOWN INDICATION
     Dosage: 0.5 MG, UNK
     Route: 065
     Dates: start: 201705

REACTIONS (6)
  - Fatigue [Unknown]
  - Chills [Unknown]
  - Restlessness [Unknown]
  - Palpitations [Unknown]
  - Chest pain [Unknown]
  - Somnolence [Unknown]

NARRATIVE: CASE EVENT DATE: 201705
